FAERS Safety Report 16460460 (Version 2)
Quarter: 2023Q4

REPORT INFORMATION
  Report Type: Spontaneous
  Country: IT (occurrence: IT)
  Receive Date: 20190620
  Receipt Date: 20231016
  Transmission Date: 20240110
  Serious: Yes (Hospitalization, Other)
  Sender: FDA-Public Use
  Company Number: IT-MYLANLABS-2019M1057572

PATIENT
  Age: 5 Year
  Sex: Female
  Weight: 16 kg

DRUGS (1)
  1. CLARITHROMYCIN [Suspect]
     Active Substance: CLARITHROMYCIN
     Indication: Product used for unknown indication
     Dosage: 880 MILLIGRAM (ABOUT 20 HOURS AGO)
     Route: 048

REACTIONS (3)
  - Accidental overdose [Recovered/Resolved]
  - Kounis syndrome [Recovered/Resolved]
  - Abdominal pain upper [Recovered/Resolved]
